FAERS Safety Report 8509173-2 (Version None)
Quarter: 2012Q3

REPORT INFORMATION
  Report Type: 
  Country: None (occurrence: None)
  Receive Date: 20120702
  Receipt Date: 20120619
  Transmission Date: 20120928
  Serious: Yes (Other)
  Sender: FDA-Public Use
  Company Number: DSA_58083_2012

PATIENT

DRUGS (7)
  1. FLUOROURACIL [Suspect]
     Indication: COLORECTAL CANCER METASTATIC
     Dosage: (400 MG/M2 (ONCE) INTRAVENOUS BOLUS), (2400 MG/M2 (EVERY OTHER WEEK))
     Route: 040
  2. CETUXIMAB (CETUXIMAB) [Suspect]
     Indication: COLORECTAL CANCER METASTATIC
     Dosage: SEE IMAGE
  3. LEUCOVORIN CALCIUM [Suspect]
     Indication: COLORECTAL CANCER METASTATIC
     Dosage: (200 MG/M2 (EVERY OTHER WEEK) INTRAVENOUS (NOT OTHERWISE SPECIFIED))
     Route: 042
  4. IRINOTECAN HCL [Suspect]
     Indication: COLORECTAL CANCER METASTATIC
     Dosage: (180 MG/M2 (EVERY OTHER WEEK) INTRAVENOUS (NOT OTHERWISE SPECIFIED))
     Route: 042
  5. ANTIHISTAMINES [Concomitant]
  6. OXALIPLATIN [Suspect]
     Indication: COLORECTAL CANCER METASTATIC
     Dosage: (85 MG/M2 (EVERY OTHER WEEK) INTRAVENOUS (NOT OTHERWISE SPECIFIED))
     Route: 042
  7. NEUPOGEN [Concomitant]

REACTIONS (1)
  - DERMATITIS ACNEIFORM [None]
